FAERS Safety Report 10973704 (Version 1)
Quarter: 2015Q2

REPORT INFORMATION
  Report Type: Spontaneous
  Country: FR (occurrence: FR)
  Receive Date: 20150401
  Receipt Date: 20150401
  Transmission Date: 20150821
  Serious: Yes (Other)
  Sender: FDA-Public Use
  Company Number: FR-JNJFOC-20150321813

PATIENT
  Age: 61 Year
  Sex: Female
  Weight: 68 kg

DRUGS (4)
  1. IXPRIM [Suspect]
     Active Substance: ACETAMINOPHEN\TRAMADOL HYDROCHLORIDE
     Indication: OSTEOARTHRITIS
     Dosage: 2 TABLETS DAILY IN THE MORNING
     Route: 048
  2. IXPRIM [Suspect]
     Active Substance: ACETAMINOPHEN\TRAMADOL HYDROCHLORIDE
     Indication: OSTEOARTHRITIS
     Route: 048
     Dates: start: 2012, end: 201412
  3. ESTRADIOL/NORETHISTERONE ACETATE [Concomitant]
     Active Substance: ESTRADIOL\NORETHINDRONE ACETATE
     Indication: MENOPAUSE
     Route: 065
  4. CARBIMAZOLE [Concomitant]
     Active Substance: CARBIMAZOLE
     Indication: HYPERTHYROIDISM
     Route: 065

REACTIONS (2)
  - Drug withdrawal syndrome [Recovering/Resolving]
  - Major depression [Recovering/Resolving]

NARRATIVE: CASE EVENT DATE: 201501
